FAERS Safety Report 11648880 (Version 1)
Quarter: 2015Q4

REPORT INFORMATION
  Report Type: Spontaneous
  Country: BR (occurrence: BR)
  Receive Date: 20151021
  Receipt Date: 20151021
  Transmission Date: 20160304
  Serious: Yes (Other)
  Sender: FDA-Public Use
  Company Number: BR-PFIZER INC-2015291343

PATIENT
  Age: 39 Year
  Sex: Female
  Weight: 60 kg

DRUGS (1)
  1. PRISTIQ EXTENDED RELEASE [Suspect]
     Active Substance: DESVENLAFAXINE SUCCINATE
     Indication: DEPRESSION
     Dosage: ONE TABLET (50 MG), DAILY
     Dates: start: 201505

REACTIONS (5)
  - Condition aggravated [Recovering/Resolving]
  - Lacrimation decreased [Unknown]
  - Dry eye [Recovering/Resolving]
  - Nasal dryness [Recovered/Resolved]
  - Myopia [Unknown]

NARRATIVE: CASE EVENT DATE: 2015
